FAERS Safety Report 16854839 (Version 1)
Quarter: 2019Q3

REPORT INFORMATION
  Report Type: Spontaneous
  Country: US (occurrence: US)
  Receive Date: 20190926
  Receipt Date: 20190926
  Transmission Date: 20191005
  Serious: Yes (Other)
  Sender: FDA-Public Use
  Company Number: US-IGSA-SR10007886

PATIENT
  Age: 10 Year
  Sex: Male

DRUGS (3)
  1. HUMAN SERUM ALBUMIN [Suspect]
     Active Substance: ALBUMIN HUMAN
     Indication: PLASMAPHERESIS
  2. SODIUM CITRATE. [Concomitant]
     Active Substance: SODIUM CITRATE
     Indication: ANTICOAGULANT THERAPY
  3. HUMAN SERUM ALBUMIN [Suspect]
     Active Substance: ALBUMIN HUMAN
     Indication: CHRONIC INFLAMMATORY DEMYELINATING POLYRADICULONEUROPATHY
     Route: 042

REACTIONS (8)
  - Nasal congestion [Recovered/Resolved]
  - Rash [Recovered/Resolved]
  - Throat clearing [Recovered/Resolved]
  - Dyspnoea [Recovered/Resolved]
  - Wheezing [Recovered/Resolved]
  - Anaphylactic reaction [Recovered/Resolved]
  - Vomiting [Recovered/Resolved]
  - Hypoxia [Recovered/Resolved]
